FAERS Safety Report 21266863 (Version 2)
Quarter: 2022Q3

REPORT INFORMATION
  Report Type: Report from Study
  Country: US (occurrence: US)
  Receive Date: 20220829
  Receipt Date: 20220906
  Transmission Date: 20221027
  Serious: No
  Sender: FDA-Public Use
  Company Number: US-NOVARTISTESTPH-NVSC2022US194054

PATIENT
  Sex: Female

DRUGS (2)
  1. COSENTYX [Suspect]
     Active Substance: SECUKINUMAB
     Indication: Psoriasis
     Dosage: 300 MG (LOADING DOSE FOR 5 WEEKS, WHICH WAS JUST COMPLETED ON 8/8/22, AND THEN MONTHLY INJECTIONS)
     Route: 058
     Dates: start: 20220711
  2. COSENTYX [Suspect]
     Active Substance: SECUKINUMAB
     Indication: Psoriatic arthropathy
     Dosage: 300 MG (LOADING DOSE FOR 5 WEEKS, WHICH WAS JUST COMPLETED ON 8/8/22, AND THEN MONTHLY INJECTIONS)
     Route: 058
     Dates: start: 20220808

REACTIONS (5)
  - COVID-19 [Unknown]
  - Hyperaemia [Unknown]
  - Cough [Unknown]
  - Headache [Unknown]
  - Pyrexia [Unknown]

NARRATIVE: CASE EVENT DATE: 20220824
